FAERS Safety Report 4443672-8 (Version None)
Quarter: 2004Q3

REPORT INFORMATION
  Report Type: 
  Country: None (occurrence: None)
  Receive Date: 20040908
  Receipt Date: 20040826
  Transmission Date: 20050211
  Serious: Yes (Hospitalization)
  Sender: FDA-Public Use
  Company Number: RU-GLAXOSMITHKLINE-B0344447A

PATIENT
  Age: 60 Year
  Sex: Female

DRUGS (3)
  1. SERETIDE [Suspect]
     Dates: start: 20040601
  2. SUSTAC FORTE [Concomitant]
     Dosage: 6.4MG THREE TIMES PER DAY
     Route: 048
     Dates: start: 20000101
  3. VERAPAMIL [Concomitant]
     Dosage: 40MG THREE TIMES PER DAY
     Route: 048
     Dates: start: 20000101

REACTIONS (9)
  - ASTHMA [None]
  - CHEST PAIN [None]
  - COUGH [None]
  - FATIGUE [None]
  - HYPERVENTILATION [None]
  - LOBAR PNEUMONIA [None]
  - MALAISE [None]
  - PYREXIA [None]
  - SPUTUM PURULENT [None]
